FAERS Safety Report 26061233 (Version 1)
Quarter: 2025Q4

REPORT INFORMATION
  Report Type: Spontaneous
  Country: TW (occurrence: TW)
  Receive Date: 20251118
  Receipt Date: 20251118
  Transmission Date: 20260118
  Serious: Yes (Hospitalization, Other)
  Sender: GALPHARM INTERNATIONAL
  Company Number: TW-MLMSERVICE-20180312-1104951-1

PATIENT
  Age: 2 Year
  Sex: Male

DRUGS (4)
  1. ACETAMINOPHEN [Interacting]
     Active Substance: ACETAMINOPHEN
     Indication: Pyrexia
     Route: 065
  2. DICLOFENAC SODIUM [Interacting]
     Active Substance: DICLOFENAC SODIUM
     Indication: Pyrexia
     Dosage: 1.6 MG KG^-1 DAY^-1
  3. CEFTRIAXONE [Interacting]
     Active Substance: CEFTRIAXONE
     Indication: Pyrexia
  4. CEPHALEXIN [Interacting]
     Active Substance: CEPHALEXIN
     Indication: Pyrexia

REACTIONS (7)
  - Large intestine perforation [Recovering/Resolving]
  - Drug interaction [Recovering/Resolving]
  - Abdominal abscess [Recovering/Resolving]
  - Escherichia infection [Recovering/Resolving]
  - Klebsiella infection [Recovering/Resolving]
  - Beta haemolytic streptococcal infection [Recovering/Resolving]
  - Peritonitis [Recovering/Resolving]
